FAERS Safety Report 12419517 (Version 1)
Quarter: 2016Q2

REPORT INFORMATION
  Report Type: Spontaneous
  Country: US (occurrence: None)
  Receive Date: 20160527
  Receipt Date: 20160527
  Transmission Date: 20160815
  Serious: No
  Sender: FDA-Public Use
  Company Number: None

PATIENT
  Age: 68 Year
  Sex: Male
  Weight: 67.7 kg

DRUGS (1)
  1. ALPROSTADIL. [Suspect]
     Active Substance: ALPROSTADIL
     Indication: ERECTILE DYSFUNCTION
     Dates: start: 20160407, end: 20160407

REACTIONS (3)
  - Joint swelling [None]
  - Neck pain [None]
  - Arthralgia [None]

NARRATIVE: CASE EVENT DATE: 20160407
